FAERS Safety Report 9350617 (Version 9)
Quarter: 2014Q3

REPORT INFORMATION
  Report Type: Report from Study
  Country: PL (occurrence: PL)
  Receive Date: 20130617
  Receipt Date: 20140805
  Transmission Date: 20150326
  Serious: Yes (Hospitalization)
  Sender: FDA-Public Use
  Company Number: PL-ROCHE-1222273

PATIENT
  Age: 90 Year
  Sex: Male
  Weight: 80 kg

DRUGS (19)
  1. BENAZEPRIL HYDROCHLORIDE. [Concomitant]
     Active Substance: BENAZEPRIL HYDROCHLORIDE
     Indication: HYPERTENSION
     Route: 065
     Dates: start: 200301
  2. FENORATIO RETARD [Concomitant]
     Indication: HYPERLIPIDAEMIA
     Route: 065
     Dates: start: 200801
  3. LOKREN [Concomitant]
     Active Substance: BETAXOLOL HYDROCHLORIDE
     Indication: HYPERTENSION
     Route: 065
     Dates: start: 200301
  4. ASPARAGINIAN EXTRA [Concomitant]
     Route: 065
     Dates: start: 200801
  5. ACARD [Concomitant]
     Active Substance: ASPIRIN
     Indication: PROPHYLAXIS
     Route: 065
     Dates: start: 200301
  6. AMOTAKS [Concomitant]
     Indication: NASOPHARYNGITIS
     Route: 065
     Dates: start: 20130325, end: 20130402
  7. ISLA CASSIS [Concomitant]
     Indication: NASOPHARYNGITIS
     Route: 065
     Dates: start: 20130325, end: 20130402
  8. VISMODEGIB [Suspect]
     Active Substance: VISMODEGIB
     Indication: BASAL CELL CARCINOMA
     Route: 048
     Dates: start: 20130218, end: 20130423
  9. INDAPEN [Concomitant]
     Active Substance: INDAPAMIDE
     Indication: HYPERTENSION
     Route: 065
     Dates: start: 200301
  10. ASPARAGINIAN EXTRA [Concomitant]
     Indication: PROPHYLAXIS
     Route: 065
     Dates: start: 200801
  11. MAGNE-B6 (POLAND) [Concomitant]
     Route: 065
     Dates: start: 20130312, end: 20130317
  12. MAGNE-B6 (POLAND) [Concomitant]
     Indication: MUSCLE SPASMS
     Route: 065
     Dates: start: 20130312
  13. VASTAN [Concomitant]
     Indication: HYPERCHOLESTEROLAEMIA
     Route: 065
     Dates: start: 200801
  14. POLTRAM COMBO [Concomitant]
     Indication: MUSCLE SPASMS
     Route: 065
     Dates: start: 20130409
  15. KAMIREN [Concomitant]
     Indication: BENIGN PROSTATIC HYPERPLASIA
     Route: 065
     Dates: start: 200801
  16. AMLODIPINE [Concomitant]
     Active Substance: AMLODIPINE BESYLATE
     Indication: HYPERTENSION
     Route: 065
     Dates: start: 200301
  17. VICEBROL [Concomitant]
     Active Substance: VINPOCETINE
     Indication: ARTERIOSCLEROSIS
     Route: 065
     Dates: start: 200801
  18. ASPARAGINIAN EXTRA [Concomitant]
     Route: 065
     Dates: start: 20130312
  19. RUTINOSCORBIN [Concomitant]
     Indication: PROPHYLAXIS
     Route: 065
     Dates: start: 200801

REACTIONS (1)
  - Drug-induced liver injury [Recovered/Resolved with Sequelae]

NARRATIVE: CASE EVENT DATE: 20130425
